FAERS Safety Report 5360276-3 (Version None)
Quarter: 2007Q2

REPORT INFORMATION
  Report Type: 
  Country: None (occurrence: None)
  Receive Date: 20070614
  Receipt Date: 20070604
  Transmission Date: 20071010
  Serious: Yes (Death)
  Sender: FDA-Public Use
  Company Number: S07-USA-02438-01

PATIENT

DRUGS (1)
  1. LEXAPRO [Suspect]
     Indication: DEPRESSION
     Dosage: 4200 UNITS Q2WKS IV
     Route: 042
     Dates: start: 20050121

REACTIONS (1)
  - COMPLETED SUICIDE [None]
